FAERS Safety Report 5051778-8 (Version None)
Quarter: 2006Q3

REPORT INFORMATION
  Report Type: 
  Country: None (occurrence: None)
  Receive Date: 20060714
  Receipt Date: 20060714
  Transmission Date: 20061208
  Serious: Yes (Other)
  Sender: FDA-Public Use
  Company Number: None

PATIENT
  Sex: Female

DRUGS (5)
  1. FEXOFENADINE [Suspect]
     Indication: SEASONAL ALLERGY
     Dosage: 180 MG ONCE DAILY PO
     Route: 048
     Dates: start: 20050601, end: 20060501
  2. FEXOFENADINE [Suspect]
  3. PREMPRO [Concomitant]
  4. NEXIUM [Concomitant]
  5. FOSINOPRIL SODIUM [Concomitant]

REACTIONS (2)
  - DIARRHOEA [None]
  - PHARMACEUTICAL PRODUCT COMPLAINT [None]
